FAERS Safety Report 4844679-9 (Version None)
Quarter: 2005Q4

REPORT INFORMATION
  Report Type: 
  Country: None (occurrence: None)
  Receive Date: 20051129
  Receipt Date: 20051116
  Transmission Date: 20060501
  Serious: Yes (Other)
  Sender: FDA-Public Use
  Company Number: 219591

PATIENT
  Sex: Female

DRUGS (8)
  1. HERCEPTIN (TRASTUZUMAB) PWDR + SOLVEWNT, INFUSION SOLN, 440MG [Suspect]
     Indication: BREAST CANCER
  2. COREG [Concomitant]
  3. LISINOPRIL [Concomitant]
  4. DIGOXIN [Concomitant]
  5. LIPITOR [Concomitant]
  6. VITAMINS (VITAMINS NOS) [Concomitant]
  7. ALLEGRA [Concomitant]
  8. NAVELBINE [Concomitant]

REACTIONS (4)
  - CARDIAC MURMUR [None]
  - DILATATION VENTRICULAR [None]
  - EJECTION FRACTION DECREASED [None]
  - TRICUSPID VALVE INCOMPETENCE [None]
